FAERS Safety Report 9643199 (Version 1)
Quarter: 2013Q4

REPORT INFORMATION
  Report Type: Spontaneous
  Country: US (occurrence: US)
  Receive Date: 20131024
  Receipt Date: 20131024
  Transmission Date: 20140711
  Serious: No
  Sender: FDA-Public Use
  Company Number: US-GLAXOSMITHKLINE-A1032216A

PATIENT
  Age: 14 Year
  Sex: Male

DRUGS (3)
  1. DUAC [Suspect]
     Indication: ACNE
     Dosage: 1APP PER DAY
     Route: 061
     Dates: start: 2011
  2. BENZOYL PEROXIDE + CLINDAMYCIN PHOSPHATE [Suspect]
     Dosage: 1APP TWICE PER DAY
     Route: 048
     Dates: start: 201303
  3. AVEENO SKIN PRODUCT (UNSPECIFIED) [Concomitant]

REACTIONS (3)
  - Drug ineffective [Not Recovered/Not Resolved]
  - Incorrect product storage [Unknown]
  - Drug ineffective [Unknown]
